FAERS Safety Report 9953382 (Version 1)
Quarter: 2014Q1

REPORT INFORMATION
  Report Type: Report from Study
  Country: US (occurrence: US)
  Receive Date: 20140304
  Receipt Date: 20140304
  Transmission Date: 20141002
  Serious: No
  Sender: FDA-Public Use
  Company Number: US-ABBVIE-13P-163-1073562-00

PATIENT
  Sex: Male
  Weight: 93.07 kg

DRUGS (3)
  1. HUMIRA [Suspect]
     Indication: PSORIATIC ARTHROPATHY
     Dates: start: 2010
  2. PENICILLIN [Suspect]
     Indication: OROPHARYNGEAL PAIN
     Dates: start: 2011, end: 2011
  3. ALEVE [Concomitant]
     Indication: PSORIATIC ARTHROPATHY

REACTIONS (4)
  - Oropharyngeal pain [Recovered/Resolved]
  - Psoriasis [Not Recovered/Not Resolved]
  - Rash generalised [Recovered/Resolved]
  - Injection site mass [Recovered/Resolved]
